FAERS Safety Report 18966885 (Version 1)
Quarter: 2021Q1

REPORT INFORMATION
  Report Type: Spontaneous
  Country: FR (occurrence: FR)
  Receive Date: 20210304
  Receipt Date: 20210304
  Transmission Date: 20210420
  Serious: Yes (Congenital Anomaly, Other)
  Sender: FDA-Public Use
  Company Number: FR-SA-2021SA072505

PATIENT
  Age: 0 Year
  Sex: Male
  Weight: 1.9 kg

DRUGS (2)
  1. OVITRELLE [Suspect]
     Active Substance: CHORIOGONADOTROPIN ALFA
     Indication: INFERTILITY FEMALE
     Dosage: NO PRECISION
     Route: 064
     Dates: start: 20170730
  2. CLOMID [Suspect]
     Active Substance: CLOMIPHENE CITRATE
     Indication: INFERTILITY FEMALE
     Dosage: NO PRECISION
     Route: 064
     Dates: start: 20170730

REACTIONS (1)
  - Hypospadias [Recovered/Resolved with Sequelae]
